FAERS Safety Report 18755773 (Version 1)
Quarter: 2021Q1

REPORT INFORMATION
  Report Type: Report from Study
  Country: IL (occurrence: IL)
  Receive Date: 20210119
  Receipt Date: 20210119
  Transmission Date: 20210419
  Serious: Yes (Death, Hospitalization)
  Sender: FDA-Public Use
  Company Number: IL-BRISTOL-MYERS SQUIBB COMPANY-BMS-2021-004560

PATIENT
  Age: 79 Year
  Sex: Male

DRUGS (2)
  1. IPILIMUMAB [Suspect]
     Active Substance: IPILIMUMAB
     Indication: KAPOSI^S SARCOMA
     Dosage: 1 MILLIGRAM/KILOGRAM
     Route: 042
     Dates: start: 20200304
  2. NIVOLUMAB [Suspect]
     Active Substance: NIVOLUMAB
     Indication: KAPOSI^S SARCOMA
     Dosage: 240 MILLIGRAM
     Route: 042
     Dates: start: 20200304

REACTIONS (1)
  - Laryngeal neoplasm [Fatal]

NARRATIVE: CASE EVENT DATE: 20210116
